FAERS Safety Report 9328816 (Version 2)
Quarter: 2013Q2

REPORT INFORMATION
  Report Type: Spontaneous
  Country: DE (occurrence: DE)
  Receive Date: 20130604
  Receipt Date: 20130614
  Transmission Date: 20140414
  Serious: Yes (Death, Other)
  Sender: FDA-Public Use
  Company Number: DE-BRISTOL-MYERS SQUIBB COMPANY-17077140

PATIENT
  Age: 67 Year
  Sex: Male
  Weight: 90 kg

DRUGS (3)
  1. IPILIMUMAB [Suspect]
     Indication: METASTATIC MALIGNANT MELANOMA
     Dosage: 2 INFUSION
     Route: 042
     Dates: start: 20120731, end: 20121009
  2. VOLTAREN RESINAT [Concomitant]
     Indication: PAIN
  3. PRADAXA [Concomitant]
     Indication: CEREBRAL INFARCTION

REACTIONS (4)
  - Sepsis [Fatal]
  - Pneumonia [Fatal]
  - Intestinal perforation [Unknown]
  - Enterocolitis [Unknown]
